FAERS Safety Report 8791170 (Version 1)
Quarter: 2012Q4

REPORT INFORMATION
  Report Type: Spontaneous
  Country: US (occurrence: None)
  Receive Date: 20120914
  Receipt Date: 20120914
  Transmission Date: 20130627
  Serious: Yes (Hospitalization)
  Sender: FDA-Public Use
  Company Number: None

PATIENT
  Age: 69 Year
  Sex: Male
  Weight: 88.6 kg

DRUGS (12)
  1. IBUPROFEN [Suspect]
     Indication: SCIATICA
     Dosage: 1-2 TAB QD INTERMITEN PO RECENTLY
     Route: 048
  2. PLAVIX [Suspect]
     Indication: TRANSIENT ISCHEMIC ATTACKS
     Dosage: 75 mg daily po chronic
     Route: 048
  3. ASA [Suspect]
     Indication: CORONARY ARTERY DISEASE
     Dosage: 81mg bid intermiten po chronic
     Route: 048
  4. LANSOPRAZOLE [Concomitant]
  5. SULCRALFATE [Concomitant]
  6. CIPROFLOXACIN [Concomitant]
  7. METRONIDAZOLE [Concomitant]
  8. NORCO [Concomitant]
  9. TOPROL XL [Concomitant]
  10. ROSUVASTIN [Concomitant]
  11. NIACIN [Concomitant]
  12. LISINOPRIL [Concomitant]

REACTIONS (1)
  - Small intestinal haemorrhage [None]
